FAERS Safety Report 6112431-2 (Version None)
Quarter: 2009Q1

REPORT INFORMATION
  Report Type: 
  Country: None (occurrence: None)
  Receive Date: 20090312
  Receipt Date: 20090226
  Transmission Date: 20090719
  Serious: Yes (Other)
  Sender: FDA-Public Use
  Company Number: PHHY2009CA07220

PATIENT
  Sex: Male

DRUGS (1)
  1. DIOVAN [Suspect]
     Dosage: 1 TABLET DAILY
     Route: 048
     Dates: start: 20090212

REACTIONS (5)
  - BRONCHITIS [None]
  - DIZZINESS [None]
  - NAUSEA [None]
  - VERTIGO [None]
  - VIRAL INFECTION [None]
